FAERS Safety Report 5150490-4 (Version None)
Quarter: 2006Q4

REPORT INFORMATION
  Report Type: 
  Country: None (occurrence: None)
  Receive Date: 20061114
  Receipt Date: 20061108
  Transmission Date: 20070319
  Serious: Yes (Other)
  Sender: FDA-Public Use
  Company Number: US-GLAXOSMITHKLINE-A0626730A

PATIENT
  Age: 50 Year
  Sex: Female

DRUGS (4)
  1. PAXIL [Suspect]
     Indication: DEPRESSION
     Dosage: 50MGD PER DAY
     Route: 048
  2. LUVOX [Concomitant]
  3. ALPRAZOLAM [Concomitant]
  4. RISPERIDONE [Concomitant]

REACTIONS (2)
  - BLOOD ALKALINE PHOSPHATASE INCREASED [None]
  - SUICIDAL IDEATION [None]
